FAERS Safety Report 4297543-0 (Version None)
Quarter: 2004Q1

REPORT INFORMATION
  Report Type: 
  Country: None (occurrence: None)
  Receive Date: 20040217
  Receipt Date: 20040217
  Transmission Date: 20041129
  Serious: Yes (Other)
  Sender: FDA-Public Use
  Company Number: None

PATIENT
  Age: 31 Year
  Sex: Male
  Weight: 83.9154 kg

DRUGS (1)
  1. ACETAZOLAMIDE [Suspect]
     Indication: MOUNTAIN SICKNESS ACUTE
     Dosage: 1 PILL ORAL
     Route: 048

REACTIONS (1)
  - VISION BLURRED [None]
